FAERS Safety Report 20582235 (Version 1)
Quarter: 2022Q1

REPORT INFORMATION
  Report Type: Spontaneous
  Country: US (occurrence: None)
  Receive Date: 20220310
  Receipt Date: 20220310
  Transmission Date: 20220423
  Serious: Yes (Other)
  Sender: FDA-Public Use
  Company Number: None

PATIENT
  Age: 50 Year
  Sex: Female
  Weight: 121.5 kg

DRUGS (1)
  1. LATUDA [Suspect]
     Active Substance: LURASIDONE HYDROCHLORIDE
     Indication: Bipolar disorder
     Dosage: FREQUENCY : DAILY;?
     Route: 048
     Dates: start: 20160821, end: 20211108

REACTIONS (5)
  - Cognitive disorder [None]
  - Amnesia [None]
  - Dissociation [None]
  - Emotional poverty [None]
  - Decreased interest [None]

NARRATIVE: CASE EVENT DATE: 20211121
